FAERS Safety Report 6919864-2 (Version None)
Quarter: 2010Q3

REPORT INFORMATION
  Report Type: 
  Country: None (occurrence: None)
  Receive Date: 20100810
  Receipt Date: 20100810
  Transmission Date: 20110219
  Serious: Yes (Other)
  Sender: FDA-Public Use
  Company Number: None

PATIENT
  Age: 74 Year
  Sex: Female
  Weight: 90.7194 kg

DRUGS (1)
  1. LEVAQUIN [Suspect]
     Indication: SINUSITIS BACTERIAL
     Dosage: 750MG DAILY PO
     Route: 048
     Dates: start: 20100706, end: 20100713

REACTIONS (2)
  - ARTHRALGIA [None]
  - GENERAL PHYSICAL CONDITION ABNORMAL [None]
